FAERS Safety Report 9596244 (Version 2)
Quarter: 2014Q1

REPORT INFORMATION
  Report Type: Spontaneous
  Country: US (occurrence: US)
  Receive Date: 20131004
  Receipt Date: 20140116
  Transmission Date: 20141002
  Serious: Yes (Other)
  Sender: FDA-Public Use
  Company Number: US-BRACCO-010008

PATIENT
  Sex: Female

DRUGS (4)
  1. COZAAR [Concomitant]
  2. LABETALOL [Concomitant]
  3. READI-CAT [Suspect]
     Indication: COMPUTERISED TOMOGRAM
     Route: 048
     Dates: start: 20130930, end: 20130930
  4. SYNTHROID [Concomitant]

REACTIONS (1)
  - Blood pressure increased [Recovered/Resolved]
